FAERS Safety Report 6270857-0 (Version None)
Quarter: 2009Q3

REPORT INFORMATION
  Report Type: 
  Country: None (occurrence: None)
  Receive Date: 20090716
  Receipt Date: 20090707
  Transmission Date: 20100115
  Serious: Yes (Other)
  Sender: FDA-Public Use
  Company Number: ZA-B.I. PHARMACEUTICALS,INC./RIDGEFIELD-2009-BP-06650BP

PATIENT
  Sex: Female
  Weight: 12.1 kg

DRUGS (4)
  1. VIRAMUNE [Suspect]
     Indication: HIV INFECTION
     Dosage: 220 MG
     Route: 048
     Dates: start: 20081211
  2. AZT [Suspect]
     Indication: HIV INFECTION
     Dosage: 200 MG
     Route: 048
     Dates: start: 20081211
  3. 3TC [Suspect]
     Indication: HIV INFECTION
     Dosage: 100 MG
     Route: 048
     Dates: start: 20081211
  4. BACTRIM [Concomitant]
     Dosage: 5 ML

REACTIONS (1)
  - HEPATITIS A [None]
